FAERS Safety Report 4892621-7 (Version None)
Quarter: 2006Q1

REPORT INFORMATION
  Report Type: 
  Country: None (occurrence: None)
  Receive Date: 20060126
  Receipt Date: 20050225
  Transmission Date: 20060701
  Serious: Yes (Congenital Anomaly)
  Sender: FDA-Public Use
  Company Number: BR-ROCHE-396797

PATIENT
  Age: 38 Year
  Sex: Female
  Weight: 50 kg

DRUGS (2)
  1. ROACUTAN [Suspect]
     Indication: ACNE
     Route: 048
     Dates: start: 20040815, end: 20050220
  2. MICROVLAR [Concomitant]
     Indication: CONTRACEPTION
     Dosage: MANUFACTURER: SCHERING.
     Route: 048
     Dates: end: 20050215

REACTIONS (5)
  - CONGENITAL ANOMALY [None]
  - DRUG EXPOSURE DURING PREGNANCY [None]
  - PREGNANCY [None]
  - PREGNANCY ON ORAL CONTRACEPTIVE [None]
  - SKIN FISSURES [None]
